FAERS Safety Report 9277507 (Version 1)
Quarter: 2013Q2

REPORT INFORMATION
  Report Type: Spontaneous
  Country: US (occurrence: US)
  Receive Date: 20130508
  Receipt Date: 20130508
  Transmission Date: 20140414
  Serious: No
  Sender: FDA-Public Use
  Company Number: US-ELI_LILLY_AND_COMPANY-US201304008943

PATIENT
  Age: 52 Year
  Sex: Female

DRUGS (5)
  1. CYMBALTA [Suspect]
     Indication: DEPRESSION
     Dosage: 30 MG, QD
  2. CYMBALTA [Suspect]
     Dosage: 60 MG, QD
  3. LAMOTRIGINE [Concomitant]
  4. ESCITALOPRAM [Concomitant]
  5. TRAZODONE [Concomitant]

REACTIONS (3)
  - Hepatic enzyme increased [Unknown]
  - Hepatic steatosis [Unknown]
  - Cholelithiasis [Recovered/Resolved]
